FAERS Safety Report 8290689-1 (Version None)
Quarter: 2012Q2

REPORT INFORMATION
  Report Type: 
  Country: None (occurrence: None)
  Receive Date: 20120417
  Receipt Date: 20110317
  Transmission Date: 20120825
  Serious: No
  Sender: FDA-Public Use
  Company Number: US-ASTRAZENECA-2010SE24932

PATIENT
  Age: 64 Year
  Sex: Female

DRUGS (2)
  1. PRILOSEC [Suspect]
     Route: 048
  2. NEXIUM [Suspect]
     Route: 048

REACTIONS (10)
  - DYSPHAGIA [None]
  - INFECTION [None]
  - DYSPEPSIA [None]
  - ABDOMINAL DISTENSION [None]
  - GASTROOESOPHAGEAL REFLUX DISEASE [None]
  - INCREASED UPPER AIRWAY SECRETION [None]
  - RHEUMATOID ARTHRITIS [None]
  - DRUG HYPERSENSITIVITY [None]
  - DRUG DOSE OMISSION [None]
  - PAIN IN EXTREMITY [None]
